FAERS Safety Report 11171979 (Version 1)
Quarter: 2015Q2

REPORT INFORMATION
  Report Type: Spontaneous
  Country: US (occurrence: US)
  Receive Date: 20150608
  Receipt Date: 20150608
  Transmission Date: 20150821
  Serious: No
  Sender: FDA-Public Use
  Company Number: US-TARO-2014TAR00514

PATIENT
  Age: 12 Year
  Sex: Male
  Weight: 81.63 kg

DRUGS (2)
  1. WAL-ZYR (CETIRIZINE HYDROCHLORIDE) [Suspect]
     Active Substance: CETIRIZINE HYDROCHLORIDE
     Indication: NASAL CONGESTION
     Dosage: 5 ML, ONCE
     Dates: start: 20141027, end: 20141027
  2. CHILDRENS CETIRIZINE HYDROCHLORIDE SUGAR FREE GRAPE [Suspect]
     Active Substance: CETIRIZINE HYDROCHLORIDE
     Indication: NASAL CONGESTION
     Dosage: 7-10 ML, ONCE
     Route: 048
     Dates: start: 20141027, end: 20141027

REACTIONS (3)
  - Accidental overdose [None]
  - Off label use [None]
  - Somnolence [Not Recovered/Not Resolved]

NARRATIVE: CASE EVENT DATE: 20141027
